FAERS Safety Report 9262412 (Version 1)
Quarter: 2013Q2

REPORT INFORMATION
  Report Type: Spontaneous
  Country: US (occurrence: US)
  Receive Date: 20130430
  Receipt Date: 20130430
  Transmission Date: 20140414
  Serious: No
  Sender: FDA-Public Use
  Company Number: US-009507513-1304USA016776

PATIENT
  Sex: Female
  Weight: 51.25 kg

DRUGS (1)
  1. NUVARING [Suspect]
     Dosage: 1 RING FOR 3 WEEK USE
     Dates: start: 201210

REACTIONS (2)
  - Vaginal discharge [Unknown]
  - Inappropriate schedule of drug administration [Unknown]
